FAERS Safety Report 5042581-3 (Version None)
Quarter: 2006Q2

REPORT INFORMATION
  Report Type: 
  Country: None (occurrence: None)
  Receive Date: 20060627
  Receipt Date: 20060606
  Transmission Date: 20061013
  Serious: No
  Sender: FDA-Public Use
  Company Number: 2006072393

PATIENT
  Age: 43 Year
  Sex: Female

DRUGS (8)
  1. IRINOTECAN HCL [Suspect]
     Indication: CHLOROMA
     Dosage: (WEEKLY ON DAY 1, 8, 15), INTRAVENOUS
     Route: 042
  2. CISPLATIN [Concomitant]
  3. DESMOPRESSIN ACETATE [Concomitant]
  4. THEOPHYLLINE [Concomitant]
  5. HUSTAGIN (PLANTAGO MAJOR) [Concomitant]
  6. CODEINE PHOSPHATE (CODEINE PHOSPHATE) [Concomitant]
  7. MAGNESIUM OXIDE (MAGNESIUM OXIDE) [Concomitant]
  8. PRIMPERAN TAB [Concomitant]

REACTIONS (30)
  - CARDIOVASCULAR DISORDER [None]
  - CEREBRAL HAEMORRHAGE [None]
  - CYST [None]
  - DIARRHOEA [None]
  - HAEMOGLOBIN DECREASED [None]
  - HEPATIC STEATOSIS [None]
  - HYPERALBUMINAEMIA [None]
  - LOSS OF CONSCIOUSNESS [None]
  - METASTASES TO ADRENALS [None]
  - METASTASES TO BONE MARROW [None]
  - METASTASES TO GALLBLADDER [None]
  - METASTASES TO GASTROINTESTINAL TRACT [None]
  - METASTASES TO HEART [None]
  - METASTASES TO KIDNEY [None]
  - METASTASES TO LIVER [None]
  - METASTASES TO LYMPH NODES [None]
  - METASTASES TO PLEURA [None]
  - METASTASES TO SPLEEN [None]
  - METASTASES TO UTERUS [None]
  - MYDRIASIS [None]
  - NAUSEA [None]
  - NEUTROPENIA [None]
  - OBSTRUCTIVE AIRWAYS DISORDER [None]
  - OEDEMA PERIPHERAL [None]
  - PELVIC MASS [None]
  - PLATELET COUNT DECREASED [None]
  - PLEURAL EFFUSION [None]
  - PYELECTASIA [None]
  - RESPIRATORY DISORDER [None]
  - SUPERIOR VENA CAVAL OCCLUSION [None]
